FAERS Safety Report 9288702 (Version 1)
Quarter: 2013Q2

REPORT INFORMATION
  Report Type: Spontaneous
  Country: US (occurrence: US)
  Receive Date: 20130514
  Receipt Date: 20130514
  Transmission Date: 20140414
  Serious: No
  Sender: FDA-Public Use
  Company Number: US-MYLANLABS-2013S1002873

PATIENT
  Sex: Female

DRUGS (1)
  1. METHYLDOPA TABLETS [Suspect]

REACTIONS (1)
  - Drug screen positive [Not Recovered/Not Resolved]
